FAERS Safety Report 5711262-2 (Version None)
Quarter: 2008Q2

REPORT INFORMATION
  Report Type: 
  Country: None (occurrence: None)
  Receive Date: 20080415
  Receipt Date: 20080401
  Transmission Date: 20081010
  Serious: Yes (Hospitalization)
  Sender: FDA-Public Use
  Company Number: 2008000766

PATIENT
  Age: 57 Year
  Sex: Female

DRUGS (24)
  1. ERLOTINIB (ERLOTINIB HCL) (TABLET) (ERLOTINIB HCL) [Suspect]
     Indication: LUNG ADENOCARCINOMA
     Dosage: (150 MG, QD), ORAL; (150 MG, QD), ORAL
     Route: 048
     Dates: start: 20080222, end: 20080225
  2. ERLOTINIB (ERLOTINIB HCL) (TABLET) (ERLOTINIB HCL) [Suspect]
     Indication: LUNG ADENOCARCINOMA
     Dosage: (150 MG, QD), ORAL; (150 MG, QD), ORAL
     Route: 048
     Dates: start: 20080301, end: 20080321
  3. FERRUM [Concomitant]
  4. LOXONIN (LOXOPROFEN SODIUM) [Concomitant]
  5. KELNAC (PLAUNOTOL) [Concomitant]
  6. GLYCYRON (GLYCYRON) [Concomitant]
  7. ZOLPIDEM TARTRATE [Concomitant]
  8. DICLOFENAC SODIUM [Concomitant]
  9. ATARAX [Concomitant]
  10. PENTAZOCINE LACTATE [Concomitant]
  11. CODEINE PHOSPHATE (CODEINE PHOSPHATE) [Concomitant]
  12. NAUZELIN (DOMPERIDONE) [Concomitant]
  13. PROHEPARUM (PROHEPAR) [Concomitant]
  14. LASIX [Concomitant]
  15. LACTOBACILLUS CASEI [Concomitant]
  16. FAMOTIDINE [Concomitant]
  17. DOGMATYL (SULPIRIDE) [Concomitant]
  18. HIRUDOID (HEPARINOID) [Concomitant]
  19. DECADRON [Concomitant]
  20. GLYCERIN (GLYCEROL) [Concomitant]
  21. INTRALIPOS (SOYA OIL) [Concomitant]
  22. NEO-MINOPHAGEN C (GLYCYRRHIZIC ACID, AMMONIUM SALT) [Concomitant]
  23. PRIMPERAN TAB [Concomitant]
  24. MAGMIL (MAGNESIUM HYDROXIDE) [Concomitant]

REACTIONS (3)
  - ANAEMIA [None]
  - HAEMATEMESIS [None]
  - HAEMORRHAGE [None]
